FAERS Safety Report 6154836-X (Version None)
Quarter: 2009Q2

REPORT INFORMATION
  Report Type: 
  Country: None (occurrence: None)
  Receive Date: 20090414
  Receipt Date: 20090402
  Transmission Date: 20091009
  Serious: Yes (Hospitalization, Other)
  Sender: FDA-Public Use
  Company Number: US-PFIZER INC-2009196913

PATIENT
  Sex: Female
  Weight: 2.126 kg

DRUGS (1)
  1. CHANTIX [Suspect]
     Dosage: UNK
     Route: 064
     Dates: start: 20070910

REACTIONS (3)
  - DRUG EXPOSURE DURING PREGNANCY [None]
  - PALPITATIONS [None]
  - TACHYCARDIA [None]
